FAERS Safety Report 7413270-2 (Version None)
Quarter: 2011Q2

REPORT INFORMATION
  Report Type: 
  Country: None (occurrence: None)
  Receive Date: 20110413
  Receipt Date: 20110411
  Transmission Date: 20111010
  Serious: Yes (Hospitalization, Other)
  Sender: FDA-Public Use
  Company Number: US-PFIZER INC-2011022032

PATIENT
  Sex: Male

DRUGS (6)
  1. WELLBUTRIN [Concomitant]
     Indication: SMOKING CESSATION THERAPY
     Dosage: UNK
     Dates: start: 20030101
  2. KLONOPIN [Concomitant]
     Indication: ANXIETY
     Dosage: UNK
     Dates: start: 20010101, end: 20100101
  3. ATIVAN [Concomitant]
     Indication: ANXIETY
     Dosage: UNK
     Dates: start: 20010101, end: 20100101
  4. OXYCODONE [Concomitant]
     Indication: PAIN
     Dosage: UNK
     Dates: start: 20020101
  5. CHANTIX [Suspect]
     Indication: SMOKING CESSATION THERAPY
     Dosage: 0.5MG/1MG
     Dates: start: 20061201, end: 20080201
  6. WELLBUTRIN [Concomitant]
     Indication: ANXIETY

REACTIONS (9)
  - SUICIDE ATTEMPT [None]
  - DEPRESSION [None]
  - PARANOIA [None]
  - ABNORMAL BEHAVIOUR [None]
  - AGITATION [None]
  - INTENTIONAL OVERDOSE [None]
  - IRRITABILITY [None]
  - INSOMNIA [None]
  - ANXIETY [None]
